FAERS Safety Report 21914057 (Version 4)
Quarter: 2023Q2

REPORT INFORMATION
  Report Type: Report from Study
  Country: US (occurrence: US)
  Receive Date: 20230126
  Receipt Date: 20230518
  Transmission Date: 20230722
  Serious: No
  Sender: FDA-Public Use
  Company Number: US-002147023-NVSC2023US012768

PATIENT
  Sex: Female

DRUGS (2)
  1. COSENTYX [Suspect]
     Active Substance: SECUKINUMAB
     Indication: Psoriasis
     Dosage: 300 MG, QMO (2 PENS (150 MG/ML) SUBCUTANEOUSLY EVERY 4 WEEKS)
     Route: 058
     Dates: start: 2021
  2. COSENTYX [Suspect]
     Active Substance: SECUKINUMAB
     Dosage: 300 MG, QMO (2 PENS (150 MG/ML) SUBCUTANEOUSLY EVERY 4 WEEKS)
     Route: 058

REACTIONS (16)
  - Lymphadenopathy [Unknown]
  - Hidradenitis [Not Recovered/Not Resolved]
  - Fistula [Not Recovered/Not Resolved]
  - Vaginal scarring [Not Recovered/Not Resolved]
  - Skin mass [Not Recovered/Not Resolved]
  - Acne [Not Recovered/Not Resolved]
  - Acne pustular [Not Recovered/Not Resolved]
  - Scar [Not Recovered/Not Resolved]
  - Stress [Unknown]
  - Infection [Unknown]
  - Psoriasis [Not Recovered/Not Resolved]
  - Skin lesion [Not Recovered/Not Resolved]
  - Skin exfoliation [Not Recovered/Not Resolved]
  - Pruritus [Not Recovered/Not Resolved]
  - Skin plaque [Not Recovered/Not Resolved]
  - Erythema annulare [Not Recovered/Not Resolved]
